FAERS Safety Report 10016315 (Version 1)
Quarter: 2014Q1

REPORT INFORMATION
  Report Type: Spontaneous
  Country: US (occurrence: US)
  Receive Date: 20140317
  Receipt Date: 20140317
  Transmission Date: 20141002
  Serious: No
  Sender: FDA-Public Use
  Company Number: US-PFIZER INC-2014075617

PATIENT
  Sex: 0

DRUGS (1)
  1. CHANTIX [Suspect]
     Dosage: UNK
     Dates: start: 2014

REACTIONS (4)
  - Insomnia [Unknown]
  - Dyspnoea [Unknown]
  - Chest discomfort [Unknown]
  - Panic attack [Unknown]
